FAERS Safety Report 4682729-3 (Version None)
Quarter: 2005Q2

REPORT INFORMATION
  Report Type: 
  Country: None (occurrence: None)
  Receive Date: 20050606
  Receipt Date: 20050506
  Transmission Date: 20051028
  Serious: Yes (Hospitalization)
  Sender: FDA-Public Use
  Company Number: US-JNJFOC-20050201219

PATIENT
  Sex: Female

DRUGS (1)
  1. TOPAMAX [Suspect]
     Indication: MIGRAINE PROPHYLAXIS
     Route: 049

REACTIONS (4)
  - IRRITABLE BOWEL SYNDROME [None]
  - MENINGITIS VIRAL [None]
  - PNEUMONIA STREPTOCOCCAL [None]
  - SEPSIS [None]
